FAERS Safety Report 16531961 (Version 2)
Quarter: 2023Q1

REPORT INFORMATION
  Report Type: Spontaneous
  Country: GB (occurrence: GB)
  Receive Date: 20190704
  Receipt Date: 20230121
  Transmission Date: 20230417
  Serious: Yes (Other)
  Sender: FDA-Public Use
  Company Number: GB-AUROBINDO-AUR-APL-2012-00601

PATIENT
  Age: 19 Year
  Sex: Female

DRUGS (2)
  1. LEVETIRACETAM [Interacting]
     Active Substance: LEVETIRACETAM
     Indication: Epilepsy
     Dosage: 250 MG,TWO TIMES A DAY,
     Route: 065
  2. ETHINYL ESTRADIOL\NORETHINDRONE [Interacting]
     Active Substance: ETHINYL ESTRADIOL\NORETHINDRONE
     Indication: Contraception
     Dosage: UNK UNK,UNK,
     Route: 048

REACTIONS (4)
  - Abortion spontaneous [Unknown]
  - Pregnancy on oral contraceptive [Recovered/Resolved]
  - Drug interaction [Unknown]
  - Maternal exposure during pregnancy [Recovered/Resolved]

NARRATIVE: CASE EVENT DATE: 20101205
